FAERS Safety Report 7641669-8 (Version None)
Quarter: 2011Q3

REPORT INFORMATION
  Report Type: 
  Country: None (occurrence: None)
  Receive Date: 20110728
  Receipt Date: 20110725
  Transmission Date: 20111222
  Serious: Yes (Other)
  Sender: FDA-Public Use
  Company Number: US-GLAXOSMITHKLINE-A0938193A

PATIENT
  Age: 54 Year
  Sex: Male

DRUGS (1)
  1. PARNATE [Suspect]
     Indication: DEPRESSION
     Dosage: 120MG PER DAY
     Route: 048

REACTIONS (2)
  - PLATELET COUNT DECREASED [None]
  - BONE MARROW DISORDER [None]
